FAERS Safety Report 19508052 (Version 1)
Quarter: 2021Q3

REPORT INFORMATION
  Report Type: Spontaneous
  Country: US (occurrence: US)
  Receive Date: 20210708
  Receipt Date: 20210708
  Transmission Date: 20211014
  Serious: Yes (Other)
  Sender: FDA-Public Use
  Company Number: US-PFIZER INC-2021805599

PATIENT
  Age: 71 Year
  Sex: Male

DRUGS (2)
  1. TOVIAZ [Suspect]
     Active Substance: FESOTERODINE FUMARATE
     Indication: URGE INCONTINENCE
     Dosage: 8 MG
  2. TOVIAZ [Suspect]
     Active Substance: FESOTERODINE FUMARATE
     Indication: MICTURITION URGENCY
     Dosage: 4 MG

REACTIONS (5)
  - Balance disorder [Unknown]
  - Bladder disorder [Unknown]
  - Cerebrovascular accident [Unknown]
  - Hemiparesis [Unknown]
  - Muscular weakness [Unknown]
